FAERS Safety Report 7276067-2 (Version None)
Quarter: 2011Q1

REPORT INFORMATION
  Report Type: 
  Country: None (occurrence: None)
  Receive Date: 20110204
  Receipt Date: 20110124
  Transmission Date: 20110831
  Serious: Yes (Death)
  Sender: FDA-Public Use
  Company Number: US-WATSON-2011-01285

PATIENT
  Age: 56 Year
  Sex: Male

DRUGS (1)
  1. ANAGRELIDE HCL [Suspect]
     Indication: ESSENTIAL THROMBOCYTHAEMIA
     Dosage: UNK

REACTIONS (1)
  - ACUTE MYELOID LEUKAEMIA [None]
